FAERS Safety Report 9614312 (Version 1)
Quarter: 2013Q4

REPORT INFORMATION
  Report Type: Spontaneous
  Country: US (occurrence: None)
  Receive Date: 20131008
  Receipt Date: 20131008
  Transmission Date: 20140711
  Serious: No
  Sender: FDA-Public Use
  Company Number: None

PATIENT
  Age: 58 Year
  Sex: Male
  Weight: 118.2 kg

DRUGS (2)
  1. CLONAZEPAM [Suspect]
     Indication: ANXIETY
     Route: 048
     Dates: start: 20111101, end: 20111215
  2. CLONAZEPAM [Suspect]
     Indication: PANIC ATTACK
     Route: 048
     Dates: start: 20111101, end: 20111215

REACTIONS (7)
  - Agitation [None]
  - Swollen tongue [None]
  - Hypertension [None]
  - Tremor [None]
  - Angioedema [None]
  - Irritability [None]
  - Nervousness [None]
